FAERS Safety Report 15048371 (Version 4)
Quarter: 2018Q4

REPORT INFORMATION
  Report Type: Spontaneous
  Country: GB (occurrence: GB)
  Receive Date: 20180622
  Receipt Date: 20180827
  Transmission Date: 20190204
  Serious: Yes (Hospitalization)
  Sender: FDA-Public Use
  Company Number: GB-ALK-ABELLO A/S-2018AA001883

PATIENT

DRUGS (1)
  1. BEE VENOM [Suspect]
     Active Substance: APIS MELLIFERA VENOM
     Indication: ALLERGY TO VENOM
     Dosage: 100 MICROGRAM, QM
     Route: 058
     Dates: start: 20160606, end: 20180430

REACTIONS (3)
  - Hepatitis cholestatic [Not Recovered/Not Resolved]
  - Jaundice [Unknown]
  - Autoimmune hepatitis [Recovering/Resolving]

NARRATIVE: CASE EVENT DATE: 20180519
